FAERS Safety Report 10380202 (Version 1)
Quarter: 2014Q3

REPORT INFORMATION
  Report Type: Spontaneous
  Country: FR (occurrence: FR)
  Receive Date: 20140813
  Receipt Date: 20140813
  Transmission Date: 20150326
  Serious: Yes (Hospitalization, Other)
  Sender: FDA-Public Use
  Company Number: FR-BRISTOL-MYERS SQUIBB COMPANY-21281373

PATIENT
  Age: 76 Year
  Sex: Male

DRUGS (10)
  1. DARBEPOETIN ALFA [Concomitant]
     Active Substance: DARBEPOETIN ALFA
     Indication: ANAEMIA
  2. RENAGEL [Concomitant]
     Active Substance: SEVELAMER HYDROCHLORIDE
  3. ZYLORIC [Concomitant]
     Active Substance: ALLOPURINOL
     Indication: HYPERURICAEMIA
  4. LOXEN [Concomitant]
     Active Substance: NICARDIPINE HYDROCHLORIDE
  5. NEBIVOLOL [Concomitant]
     Active Substance: NEBIVOLOL
     Indication: HYPERTENSION
  6. LASILIX [Concomitant]
     Active Substance: FUROSEMIDE
     Indication: RENAL FAILURE
  7. EXELON [Concomitant]
     Active Substance: RIVASTIGMINE TARTRATE
     Indication: DEMENTIA
  8. DAFALGAN [Concomitant]
     Active Substance: ACETAMINOPHEN
     Indication: PAIN
  9. COUMADINE [Suspect]
     Active Substance: WARFARIN SODIUM
     Indication: ARRHYTHMIA
     Dosage: DEC-2013:INITIALLY 1MG, THEN INCREASED TO 2 MG?MAR14:3MG
     Route: 048
     Dates: start: 201403, end: 20140715
  10. SERESTA [Concomitant]
     Active Substance: OXAZEPAM

REACTIONS (6)
  - Decreased appetite [Unknown]
  - International normalised ratio increased [Recovered/Resolved]
  - Inflammation [Unknown]
  - Hypoalbuminaemia [Unknown]
  - General physical health deterioration [Unknown]
  - Infected skin ulcer [Unknown]

NARRATIVE: CASE EVENT DATE: 201312
